FAERS Safety Report 14155881 (Version 1)
Quarter: 2017Q4

REPORT INFORMATION
  Report Type: Spontaneous
  Country: ZA (occurrence: ZA)
  Receive Date: 20171103
  Receipt Date: 20171103
  Transmission Date: 20180321
  Serious: Yes (Other)
  Sender: FDA-Public Use
  Company Number: ZA-AUROBINDO-AUR-APL-2017-42729

PATIENT
  Age: 45 Year
  Sex: Male

DRUGS (3)
  1. STAVUDINE POWDER FOR ORAL SOLUTION [Suspect]
     Active Substance: STAVUDINE
     Indication: HIV INFECTION
     Dosage: 30 MG, TWO TIMES A DAY
  2. LAMIVUDINE. [Suspect]
     Active Substance: LAMIVUDINE
     Indication: HIV INFECTION
     Dosage: 150 MG, TWO TIMES A DAY
  3. EFAVIRENZ 600MG [Suspect]
     Active Substance: EFAVIRENZ
     Indication: HIV INFECTION
     Dosage: UNK

REACTIONS (2)
  - Lipodystrophy acquired [Recovering/Resolving]
  - Tuberculosis [Recovering/Resolving]
